FAERS Safety Report 24584576 (Version 1)
Quarter: 2024Q4

REPORT INFORMATION
  Report Type: Spontaneous
  Country: US (occurrence: None)
  Receive Date: 20241105
  Receipt Date: 20241105
  Transmission Date: 20250115
  Serious: Yes (Other)
  Sender: Public
  Company Number: None

PATIENT
  Age: 62 Year
  Sex: Male

DRUGS (1)
  1. ZYTIGA [Suspect]
     Active Substance: ABIRATERONE ACETATE
     Dates: start: 20240909, end: 20241105

REACTIONS (2)
  - Hepatotoxicity [None]
  - Prostatic specific antigen decreased [None]

NARRATIVE: CASE EVENT DATE: 20241105
